FAERS Safety Report 19105536 (Version 1)
Quarter: 2021Q2

REPORT INFORMATION
  Report Type: Spontaneous
  Country: US (occurrence: US)
  Receive Date: 20210407
  Receipt Date: 20210407
  Transmission Date: 20210717
  Serious: Yes (Other)
  Sender: FDA-Public Use
  Company Number: US-BAUSCH-BL-2021-010917

PATIENT
  Age: 69 Year
  Sex: Male

DRUGS (5)
  1. HEPARIN [Concomitant]
     Active Substance: HEPARIN SODIUM
     Indication: CENTRAL VENOUS CATHETERISATION
     Dosage: FLUSHES
  2. AZITHROMYCIN ANHYDROUS. [Concomitant]
     Active Substance: AZITHROMYCIN ANHYDROUS
     Indication: COVID-19
  3. DEXAMETHASONE. [Suspect]
     Active Substance: DEXAMETHASONE
     Indication: COVID-19
     Route: 065
  4. DEXAMETHASONE. [Suspect]
     Active Substance: DEXAMETHASONE
     Indication: PRODUCT USE IN UNAPPROVED INDICATION
  5. REMDESIVIR. [Concomitant]
     Active Substance: REMDESIVIR
     Indication: COVID-19

REACTIONS (3)
  - Adrenal insufficiency [Not Recovered/Not Resolved]
  - Product use in unapproved indication [Unknown]
  - Metabolic alkalosis [Unknown]
